FAERS Safety Report 19132956 (Version 1)
Quarter: 2021Q2

REPORT INFORMATION
  Report Type: Spontaneous
  Country: US (occurrence: US)
  Receive Date: 20210413
  Receipt Date: 20210413
  Transmission Date: 20210717
  Serious: Yes (Other)
  Sender: FDA-Public Use
  Company Number: None

PATIENT
  Sex: Male

DRUGS (1)
  1. QVAR REDIHALER [Suspect]
     Active Substance: BECLOMETHASONE DIPROPIONATE
     Indication: ASTHMA
     Dosage: ?          QUANTITY:3 INHALATION(S);?
     Route: 055
     Dates: start: 20210327

REACTIONS (2)
  - Asthma [None]
  - Ageusia [None]

NARRATIVE: CASE EVENT DATE: 20210327
